FAERS Safety Report 17231898 (Version 3)
Quarter: 2023Q2

REPORT INFORMATION
  Report Type: Spontaneous
  Country: HU (occurrence: HU)
  Receive Date: 20200103
  Receipt Date: 20230519
  Transmission Date: 20230722
  Serious: Yes (Life-Threatening, Hospitalization)
  Sender: FDA-Public Use
  Company Number: HU-AMERICAN REGENT INC-2019002898

PATIENT
  Age: 66 Year
  Sex: Female

DRUGS (19)
  1. FERINJECT [Suspect]
     Active Substance: FERRIC CARBOXYMALTOSE
     Indication: Product used for unknown indication
     Dosage: UNKNOWN
     Route: 042
  2. VENOFER [Suspect]
     Active Substance: IRON SUCROSE
     Indication: Product used for unknown indication
     Dosage: UNKNOWN
     Route: 042
  3. FOLIC ACID\IRON POLYMALTOSE [Suspect]
     Active Substance: FOLIC ACID\IRON POLYMALTOSE
     Indication: Iron deficiency anaemia
     Dosage: 1 DOSAGE FORM, BID (2 DOSAGE FORMS)
     Route: 048
     Dates: start: 20181220, end: 20190116
  4. CLARITHROMYCIN [Suspect]
     Active Substance: CLARITHROMYCIN
     Indication: Product used for unknown indication
     Dosage: 2 X 500 MILLIGRAM (1000 MG)
     Route: 048
     Dates: start: 20181120, end: 20181123
  5. METHYLPREDNISOLONE [Suspect]
     Active Substance: METHYLPREDNISOLONE
     Indication: Rash
     Dosage: 60 MILLIGRAM, QD (FOR 3 DAYS)
     Route: 065
  6. METHYLPREDNISOLONE [Suspect]
     Active Substance: METHYLPREDNISOLONE
     Dosage: 20 MILLIGRAM, QD (FOR 3 DAYS)
     Route: 048
     Dates: start: 20181114
  7. METHYLPREDNISOLONE [Suspect]
     Active Substance: METHYLPREDNISOLONE
     Dosage: 80 MILLIGRAM (FOR 2 DAYS)
     Route: 051
     Dates: start: 20181120
  8. METHYLPREDNISOLONE [Suspect]
     Active Substance: METHYLPREDNISOLONE
     Dosage: UNK
     Route: 051
     Dates: end: 20190121
  9. METRONIDAZOLE [Suspect]
     Active Substance: METRONIDAZOLE
     Indication: Product used for unknown indication
     Dosage: 2X500 MG DAILY (1000 MG, 1 IN 1 D)
     Route: 042
  10. MEROPENEM [Suspect]
     Active Substance: MEROPENEM
     Indication: Product used for unknown indication
     Dosage: 2X500 MG (1000 MILLIGRAM)
     Route: 065
     Dates: start: 20181225, end: 20181228
  11. ASPIRIN [Suspect]
     Active Substance: ASPIRIN
     Indication: Product used for unknown indication
     Dosage: 100 MILLIGRAM, QD (4 TIMES TOTAL)
     Route: 048
     Dates: start: 20181109, end: 20181119
  12. TEICOPLANIN [Suspect]
     Active Substance: TEICOPLANIN
     Indication: Product used for unknown indication
     Dosage: 800 MILLIGRAM (2 X 400 MG)
     Route: 042
     Dates: start: 20181222, end: 20181228
  13. CEFTRIAXONE [Suspect]
     Active Substance: CEFTRIAXONE
     Indication: Product used for unknown indication
     Dosage: 2 GRAM, 1 IN 1 D
     Route: 042
     Dates: start: 20181203, end: 20181226
  14. FOLIC ACID [Suspect]
     Active Substance: FOLIC ACID
     Indication: Product used for unknown indication
     Dosage: UNKNOWN
     Route: 065
  15. VANCOMYCIN [Suspect]
     Active Substance: VANCOMYCIN
     Indication: Product used for unknown indication
     Dosage: 500 MILLIGRAM, 1 IN 1 D
     Route: 042
     Dates: start: 20181203, end: 20181213
  16. IMMUNE GLOBULIN NOS [Suspect]
     Active Substance: IMMUNE GLOBULIN NOS
     Indication: Product used for unknown indication
     Dosage: UNKNOWN
     Route: 042
  17. PENTAGLOBIN [Suspect]
     Active Substance: HUMAN IMMUNOGLOBULIN G
     Indication: Product used for unknown indication
     Dosage: 500 MG/KG
     Route: 042
     Dates: start: 20181204, end: 20181207
  18. MOXIFLOXACIN [Suspect]
     Active Substance: MOXIFLOXACIN
     Indication: Product used for unknown indication
     Dosage: 400 MILLIGRAM, 1 IN 1 D
     Route: 042
     Dates: start: 20181123, end: 20181127
  19. METHYLPREDNISOLONE SODIUM SUCCINATE [Suspect]
     Active Substance: METHYLPREDNISOLONE SODIUM SUCCINATE
     Indication: Rash
     Dosage: 125 MILLIGRAM
     Route: 051
     Dates: start: 20181207

REACTIONS (6)
  - Disease progression [Unknown]
  - Enterococcal infection [Recovered/Resolved]
  - Skin ulcer [Recovered/Resolved]
  - Stenotrophomonas infection [Recovered/Resolved]
  - Acinetobacter infection [Recovered/Resolved]
  - Wound infection bacterial [Recovered/Resolved]

NARRATIVE: CASE EVENT DATE: 20181207
